FAERS Safety Report 7370996-7 (Version None)
Quarter: 2011Q1

REPORT INFORMATION
  Report Type: 
  Country: None (occurrence: None)
  Receive Date: 20110321
  Receipt Date: 20110321
  Transmission Date: 20110831
  Serious: Yes (Other)
  Sender: FDA-Public Use
  Company Number: None

PATIENT
  Age: 23 Year
  Sex: Female
  Weight: 68.0396 kg

DRUGS (2)
  1. DILANTIN [Suspect]
     Indication: CONVULSION
     Dosage: 100MG 3X DAY PO
     Route: 048
     Dates: start: 19990716, end: 20050202
  2. TOPAMAX [Concomitant]

REACTIONS (2)
  - EDUCATIONAL PROBLEM [None]
  - MATERNAL DRUGS AFFECTING FOETUS [None]
